FAERS Safety Report 10615622 (Version 1)
Quarter: 2014Q4

REPORT INFORMATION
  Report Type: Spontaneous
  Country: FR (occurrence: FR)
  Receive Date: 20141201
  Receipt Date: 20141201
  Transmission Date: 20150529
  Serious: Yes (Other)
  Sender: FDA-Public Use
  Company Number: FR-ABBVIE-14P-056-1313258-00

PATIENT
  Age: 57 Year
  Sex: Male

DRUGS (1)
  1. FENOFIBRATE FOURNIER 145 MG [Suspect]
     Active Substance: FENOFIBRATE
     Indication: HYPERCHOLESTEROLAEMIA
     Route: 048

REACTIONS (1)
  - Restless legs syndrome [Not Recovered/Not Resolved]
